FAERS Safety Report 4630829-6 (Version None)
Quarter: 2005Q1

REPORT INFORMATION
  Report Type: 
  Country: None (occurrence: None)
  Receive Date: 20050331
  Receipt Date: 20050331
  Transmission Date: 20050727
  Serious: Yes (Hospitalization)
  Sender: FDA-Public Use
  Company Number: None

PATIENT
  Sex: Female

DRUGS (7)
  1. METFORMIN    1000MG     WATSON [Suspect]
     Indication: DIABETES MELLITUS
     Dosage: 1000MG   TWICE A DAY    ORAL
     Route: 048
     Dates: start: 20050317, end: 20050325
  2. AVANDIA [Concomitant]
  3. LANTUS [Concomitant]
  4. FOSINOPRIL [Concomitant]
  5. GLIPIZIDE E.R. [Concomitant]
  6. HYDROXYCHLOROQUINE SULFATE [Concomitant]
  7. INDOMETHACIN [Concomitant]

REACTIONS (3)
  - DYSPNOEA [None]
  - HYPERSENSITIVITY [None]
  - RASH GENERALISED [None]
